FAERS Safety Report 25735428 (Version 1)
Quarter: 2025Q3

REPORT INFORMATION
  Report Type: Spontaneous
  Country: US (occurrence: None)
  Receive Date: 20250827
  Receipt Date: 20250827
  Transmission Date: 20251021
  Serious: No
  Sender: FDA-CTU
  Company Number: None

PATIENT
  Age: 1 Year
  Sex: Male

DRUGS (2)
  1. HEMANGEOL [Suspect]
     Active Substance: PROPRANOLOL HYDROCHLORIDE
     Indication: Haemangioma
     Route: 048
     Dates: start: 20240521, end: 20250827
  2. timolol 0.5% gf opth soln [Concomitant]
     Dates: start: 20250517, end: 20250827

REACTIONS (1)
  - Constipation [None]

NARRATIVE: CASE EVENT DATE: 20250801
